FAERS Safety Report 4859833-X (Version None)
Quarter: 2005Q4

REPORT INFORMATION
  Report Type: 
  Country: None (occurrence: None)
  Receive Date: 20051219
  Receipt Date: 20051214
  Transmission Date: 20060501
  Serious: Yes (Life-Threatening, Hospitalization, Other)
  Sender: FDA-Public Use
  Company Number: RU-GLAXOSMITHKLINE-B0403948A

PATIENT
  Age: 51 Year
  Sex: Female

DRUGS (1)
  1. HYCAMTIN [Suspect]
     Route: 042
     Dates: start: 20050701, end: 20051201

REACTIONS (1)
  - BREAST CANCER [None]
